FAERS Safety Report 9192730 (Version 1)
Quarter: 2013Q1

REPORT INFORMATION
  Report Type: Spontaneous
  Country: US (occurrence: None)
  Receive Date: 20130325
  Receipt Date: 20130325
  Transmission Date: 20140127
  Serious: No
  Sender: FDA-Public Use
  Company Number: ALK_2013-001365

PATIENT
  Sex: Female

DRUGS (1)
  1. VIVITROL (VIVITROL_NDA) INJECTION, 380MG [Suspect]
     Indication: ALCOHOLISM
     Route: 030

REACTIONS (3)
  - Injection site reaction [None]
  - Injection site necrosis [None]
  - Alcohol use [None]
